FAERS Safety Report 10179074 (Version 2)
Quarter: 2014Q2

REPORT INFORMATION
  Report Type: Spontaneous
  Country: US (occurrence: US)
  Receive Date: 20140519
  Receipt Date: 20140623
  Transmission Date: 20141212
  Serious: No
  Sender: FDA-Public Use
  Company Number: US-BIOGENIDEC-2014BI042542

PATIENT
  Age: 50 Year
  Sex: Female

DRUGS (8)
  1. TECFIDERA [Suspect]
     Indication: MULTIPLE SCLEROSIS
     Route: 048
     Dates: start: 20130823, end: 20130829
  2. TECFIDERA [Suspect]
     Indication: MULTIPLE SCLEROSIS
     Route: 048
     Dates: start: 20130830
  3. TECFIDERA [Suspect]
     Indication: MULTIPLE SCLEROSIS
     Route: 048
     Dates: start: 201309
  4. KEPPRA [Concomitant]
  5. INSULIN [Concomitant]
  6. PERCOCET [Concomitant]
  7. XANAX [Concomitant]
  8. ZANTAC [Concomitant]

REACTIONS (2)
  - Urticaria [Unknown]
  - Dental care [Unknown]
